FAERS Safety Report 9938021 (Version 2)
Quarter: 2014Q2

REPORT INFORMATION
  Report Type: Spontaneous
  Country: BR (occurrence: BR)
  Receive Date: 20140303
  Receipt Date: 20140425
  Transmission Date: 20141212
  Serious: Yes (Other)
  Sender: FDA-Public Use
  Company Number: BR-ROCHE-1357607

PATIENT
  Sex: Male
  Weight: 70 kg

DRUGS (7)
  1. RIVOTRIL [Suspect]
     Indication: DEPRESSION
     Dosage: TAKEN AT 7 PM
     Route: 065
  2. RIVOTRIL [Suspect]
     Indication: PANIC ATTACK
     Route: 065
  3. DIAZEPAM [Suspect]
     Indication: HYPERTENSION
     Route: 065
  4. RIVOTRIL [Suspect]
     Indication: PANIC ATTACK
     Route: 060
  5. RIVOTRIL [Suspect]
     Indication: ANXIETY
  6. ARADOIS [Concomitant]
     Indication: HYPERTENSION
     Route: 065
  7. ASPIRIN [Concomitant]
     Route: 065

REACTIONS (7)
  - Palpitations [Not Recovered/Not Resolved]
  - Chest pain [Recovered/Resolved]
  - Nervousness [Unknown]
  - Vision blurred [Not Recovered/Not Resolved]
  - Malaise [Unknown]
  - Memory impairment [Recovered/Resolved]
  - Prostatic disorder [Not Recovered/Not Resolved]
